FAERS Safety Report 25574068 (Version 1)
Quarter: 2025Q3

REPORT INFORMATION
  Report Type: Spontaneous
  Country: US (occurrence: US)
  Receive Date: 20250717
  Receipt Date: 20250717
  Transmission Date: 20251020
  Serious: No
  Sender: PFIZER
  Company Number: US-PFIZER INC-PV202500085560

PATIENT
  Age: 43 Year
  Sex: Female

DRUGS (2)
  1. IBRANCE [Suspect]
     Active Substance: PALBOCICLIB
  2. XGEVA [Concomitant]
     Active Substance: DENOSUMAB

REACTIONS (3)
  - Fatigue [Unknown]
  - Hot flush [Unknown]
  - Rash [Recovered/Resolved]
